FAERS Safety Report 11618159 (Version 2)
Quarter: 2015Q4

REPORT INFORMATION
  Report Type: Report from Study
  Country: MY (occurrence: MY)
  Receive Date: 20151010
  Receipt Date: 20151013
  Transmission Date: 20160304
  Serious: Yes (Death, Hospitalization)
  Sender: FDA-Public Use
  Company Number: PHHY2015MY121827

PATIENT
  Age: 49 Year
  Sex: Female

DRUGS (1)
  1. GLIVEC [Suspect]
     Active Substance: IMATINIB MESYLATE
     Indication: GASTROINTESTINAL STROMAL TUMOUR
     Dosage: 400 MG, QD
     Route: 065

REACTIONS (4)
  - Septic shock [Fatal]
  - Pneumonia [Fatal]
  - Pyrexia [Fatal]
  - Cough [Fatal]

NARRATIVE: CASE EVENT DATE: 201508
